FAERS Safety Report 5601023-7 (Version None)
Quarter: 2008Q1

REPORT INFORMATION
  Report Type: 
  Country: None (occurrence: None)
  Receive Date: 20080122
  Receipt Date: 20080122
  Transmission Date: 20080703
  Serious: Yes (Hospitalization)
  Sender: FDA-Public Use
  Company Number: None

PATIENT
  Age: 49 Year
  Sex: Female
  Weight: 99 kg

DRUGS (1)
  1. OCTAGAM [Suspect]
     Indication: HEPATITIS C
     Dosage: 35GM AND 15 GM ONCE IV
     Route: 042
     Dates: start: 20071217, end: 20071217

REACTIONS (3)
  - LIP SWELLING [None]
  - PHARMACEUTICAL PRODUCT COMPLAINT [None]
  - RASH [None]
